FAERS Safety Report 15917664 (Version 3)
Quarter: 2019Q1

REPORT INFORMATION
  Report Type: Spontaneous
  Country: PT (occurrence: PT)
  Receive Date: 20190205
  Receipt Date: 20190328
  Transmission Date: 20190417
  Serious: Yes (Life-Threatening, Hospitalization, Other)
  Sender: FDA-Public Use
  Company Number: PT-AUROBINDO-AUR-APL-2018-051312

PATIENT

DRUGS (3)
  1. QUETIAPINE FILM-COATED TABLET [Suspect]
     Active Substance: QUETIAPINE
     Indication: DEMENTIA ALZHEIMER^S TYPE
     Dosage: UNK
     Route: 048
  2. SERTRALINE [Suspect]
     Active Substance: SERTRALINE HYDROCHLORIDE
     Indication: DEMENTIA ALZHEIMER^S TYPE
     Dosage: UNK
     Route: 065
  3. MEMANTINE. [Suspect]
     Active Substance: MEMANTINE
     Indication: DEMENTIA ALZHEIMER^S TYPE
     Dosage: UNK
     Route: 065

REACTIONS (9)
  - Blood creatine phosphokinase increased [Recovering/Resolving]
  - Catatonia [Recovering/Resolving]
  - Myoclonus [Recovering/Resolving]
  - Hyperhidrosis [Recovering/Resolving]
  - Leukocytosis [Recovering/Resolving]
  - Hypernatraemia [Recovering/Resolving]
  - Pyrexia [Recovering/Resolving]
  - Neuroleptic malignant syndrome [Recovered/Resolved]
  - Musculoskeletal stiffness [Recovering/Resolving]
